FAERS Safety Report 5527928-3 (Version None)
Quarter: 2007Q4

REPORT INFORMATION
  Report Type: 
  Country: None (occurrence: None)
  Receive Date: 20071128
  Receipt Date: 20071121
  Transmission Date: 20080405
  Serious: Yes (Other)
  Sender: FDA-Public Use
  Company Number: CA-AVENTIS-200720779GDDC

PATIENT
  Age: 77 Year
  Sex: Male

DRUGS (8)
  1. TAXOTERE [Suspect]
     Route: 042
     Dates: start: 20050310, end: 20050513
  2. RADIOTHERAPY [Suspect]
  3. ASPIRIN [Concomitant]
     Route: 048
  4. VIT D [Concomitant]
     Route: 048
     Dates: start: 20070301
  5. CALCIUM [Concomitant]
     Route: 048
     Dates: start: 20070301
  6. FLOMAX [Concomitant]
     Route: 048
     Dates: start: 20060308
  7. EFFEXOR [Concomitant]
     Indication: DEPRESSION
     Route: 048
     Dates: start: 20070801
  8. DILTIAZEM [Concomitant]
     Dates: start: 20070726

REACTIONS (5)
  - GROIN PAIN [None]
  - NOCTURIA [None]
  - URETHRAL STENOSIS [None]
  - URINARY HESITATION [None]
  - URINE FLOW DECREASED [None]
